FAERS Safety Report 8883785 (Version 1)
Quarter: 2012Q4

REPORT INFORMATION
  Report Type: 
  Country: US (occurrence: US)
  Receive Date: 20121102
  Receipt Date: 20121102
  Transmission Date: 20130627
  Serious: No
  Sender: FDA-Public Use
  Company Number: US-ASTRAZENECA-2012SE07198

PATIENT
  Sex: Male

DRUGS (4)
  1. CRESTOR [Suspect]
     Dosage: 5 OR 10MG THREE TIMES A WEEK
     Route: 048
  2. NIACIN [Concomitant]
  3. CLONIDINE [Concomitant]
  4. VASOTEC [Concomitant]

REACTIONS (6)
  - Nasopharyngitis [Unknown]
  - Malaise [Unknown]
  - Condition aggravated [Unknown]
  - Low density lipoprotein increased [Unknown]
  - Blood triglycerides increased [Unknown]
  - Inappropriate schedule of drug administration [Unknown]
